FAERS Safety Report 10542778 (Version 1)
Quarter: 2014Q4

REPORT INFORMATION
  Report Type: Spontaneous
  Country: NL (occurrence: NL)
  Receive Date: 20141027
  Receipt Date: 20141027
  Transmission Date: 20150529
  Serious: Yes (Life-Threatening)
  Sender: FDA-Public Use
  Company Number: NL-ELI_LILLY_AND_COMPANY-NL201410008205

PATIENT
  Age: 34 Year
  Sex: Male
  Weight: 63 kg

DRUGS (2)
  1. LORAZEPAM. [Interacting]
     Active Substance: LORAZEPAM
     Indication: CATATONIA
     Dosage: 1 MG, BID
     Route: 065
     Dates: start: 20140917
  2. ZYPREXA [Suspect]
     Active Substance: OLANZAPINE
     Indication: SCHIZOPHRENIA
     Dosage: 10 MG, QD
     Route: 065
     Dates: start: 20140917, end: 20140919

REACTIONS (3)
  - Hypotension [Recovered/Resolved]
  - Drug interaction [Recovered/Resolved]
  - Respiratory depression [Recovered/Resolved]

NARRATIVE: CASE EVENT DATE: 20140919
